FAERS Safety Report 9575032 (Version 1)
Quarter: 2013Q4

REPORT INFORMATION
  Report Type: Spontaneous
  Country: US (occurrence: US)
  Receive Date: 20131001
  Receipt Date: 20131001
  Transmission Date: 20140711
  Serious: Yes (Other)
  Sender: FDA-Public Use
  Company Number: US-MYLANLABS-2013S1021721

PATIENT
  Age: 29 Year
  Sex: Female

DRUGS (1)
  1. EPINEPHRINE [Suspect]
     Dosage: (0.3 MG/0.3 ML, 1:1,000 CONCENTRATION)
     Route: 058

REACTIONS (4)
  - Accidental exposure to product [Recovered/Resolved]
  - Injection site pain [Recovered/Resolved]
  - Injection site hypoaesthesia [Recovered/Resolved]
  - Injection site pallor [Recovered/Resolved]
